FAERS Safety Report 7794175-4 (Version None)
Quarter: 2011Q4

REPORT INFORMATION
  Report Type: 
  Country: None (occurrence: None)
  Receive Date: 20111004
  Receipt Date: 20110925
  Transmission Date: 20120403
  Serious: Yes (Other)
  Sender: FDA-Public Use
  Company Number: US-JNJFOC-20110912019

PATIENT
  Sex: Female

DRUGS (4)
  1. MICONAZOLE NITRATE [Suspect]
     Indication: FUNGAL INFECTION
     Route: 067
  2. MICONAZOLE NITRATE [Suspect]
     Route: 061
  3. MICONAZOLE NITRATE [Suspect]
     Route: 067
  4. MICONAZOLE NITRATE [Suspect]
     Route: 061

REACTIONS (1)
  - ADVERSE EVENT [None]
